FAERS Safety Report 4590593-6 (Version None)
Quarter: 2005Q1

REPORT INFORMATION
  Report Type: 
  Country: None (occurrence: None)
  Receive Date: 20050224
  Receipt Date: 20050216
  Transmission Date: 20050727
  Serious: Yes (Death)
  Sender: FDA-Public Use
  Company Number: ZA-GLAXOSMITHKLINE-B0372590A

PATIENT
  Age: 42 Year
  Sex: Male
  Weight: 62 kg

DRUGS (3)
  1. COMBIVIR [Suspect]
     Indication: SYSTEMIC ANTIVIRAL TREATMENT
     Route: 048
     Dates: start: 20040519, end: 20040526
  2. EFAVIRENZ [Suspect]
     Route: 065
  3. RIFAFOUR [Concomitant]
     Indication: PERICARDITIS TUBERCULOUS
     Dosage: 5U PER DAY
     Route: 065
     Dates: start: 20040415

REACTIONS (2)
  - HEPATIC FUNCTION ABNORMAL [None]
  - HEPATORENAL FAILURE [None]
